FAERS Safety Report 8569900-5 (Version None)
Quarter: 2012Q3

REPORT INFORMATION
  Report Type: 
  Country: None (occurrence: None)
  Receive Date: 20120803
  Receipt Date: 20120221
  Transmission Date: 20120928
  Serious: No
  Sender: FDA-Public Use
  Company Number: US-ABBOTT-12P-163-0907158-00

PATIENT
  Sex: Male
  Weight: 108.51 kg

DRUGS (12)
  1. GABAPENTIN [Concomitant]
     Indication: PRODUCT USED FOR UNKNOWN INDICATION
  2. STOOL SOFTENER [Concomitant]
     Indication: PRODUCT USED FOR UNKNOWN INDICATION
  3. FENOFIBRATE [Concomitant]
     Indication: PRODUCT USED FOR UNKNOWN INDICATION
  4. ATENOLOL [Concomitant]
     Indication: PRODUCT USED FOR UNKNOWN INDICATION
  5. UNKNOWN MIGRAINE MEDICATION [Concomitant]
     Indication: MIGRAINE
  6. CARBADOPA [Concomitant]
     Indication: PARKINSON'S DISEASE
  7. NAPROSYN [Concomitant]
     Indication: PRODUCT USED FOR UNKNOWN INDICATION
     Dosage: PRN
  8. BYSTOLIC [Concomitant]
     Indication: PRODUCT USED FOR UNKNOWN INDICATION
  9. LEVOTHYROXINE SODIUM [Concomitant]
     Indication: PRODUCT USED FOR UNKNOWN INDICATION
  10. NIASPAN [Suspect]
     Indication: HIGH DENSITY LIPOPROTEIN DECREASED
     Dates: start: 20120220, end: 20120220
  11. NIASPAN [Suspect]
     Dates: start: 20120223
  12. CLOMAZETAM [Concomitant]
     Indication: RESTLESS LEGS SYNDROME

REACTIONS (3)
  - MIGRAINE [None]
  - DIZZINESS [None]
  - LOWER RESPIRATORY TRACT INFECTION [None]
